FAERS Safety Report 8997467 (Version 1)
Quarter: 2013Q1

REPORT INFORMATION
  Report Type: Spontaneous
  Country: US (occurrence: US)
  Receive Date: 20130104
  Receipt Date: 20130104
  Transmission Date: 20140127
  Serious: Yes (Disabling, Other)
  Sender: FDA-Public Use
  Company Number: CHPA2012US025971

PATIENT
  Age: 64 Year
  Sex: Female

DRUGS (2)
  1. EXCEDRIN EXTRA STRENGTH [Suspect]
     Indication: HEADACHE
     Dosage: 2 UNK, PRN
     Route: 048
     Dates: start: 1994, end: 1998
  2. EXCEDRIN MIGRAINE [Suspect]
     Indication: SINUS HEADACHE
     Dosage: 1 UNK, PRN
     Route: 048
     Dates: start: 1998

REACTIONS (5)
  - Blindness [Recovered/Resolved]
  - Abasia [Recovered/Resolved]
  - Multiple sclerosis [Not Recovered/Not Resolved]
  - Adenocarcinoma [Recovered/Resolved]
  - Lymphadenopathy [Recovered/Resolved]
